FAERS Safety Report 7412842-9 (Version None)
Quarter: 2011Q2

REPORT INFORMATION
  Report Type: 
  Country: None (occurrence: None)
  Receive Date: 20110413
  Receipt Date: 20110406
  Transmission Date: 20111010
  Serious: Yes (Death, Disabling)
  Sender: FDA-Public Use
  Company Number: B0711981A

PATIENT
  Sex: Female
  Weight: 8.6 kg

DRUGS (11)
  1. THIOTEPA [Suspect]
     Indication: STEM CELL TRANSPLANT
     Dosage: 200MGM2 PER DAY
     Dates: start: 20031128, end: 20031129
  2. FUROSEMIDE [Concomitant]
     Dosage: 10MG PER DAY
     Route: 042
     Dates: start: 20031202, end: 20031218
  3. ALKERAN [Suspect]
     Dosage: 70MGM2 PER DAY
     Route: 042
     Dates: start: 20031205, end: 20031206
  4. DECADRON [Suspect]
     Dosage: 1MG PER DAY
     Dates: start: 20031206, end: 20031214
  5. GASTER [Concomitant]
     Dosage: 5MG PER DAY
     Route: 042
     Dates: start: 20031205, end: 20031224
  6. BAKTAR [Concomitant]
     Dosage: 1G PER DAY
     Route: 048
     Dates: start: 20031127, end: 20031205
  7. ALKERAN [Suspect]
     Indication: STEM CELL TRANSPLANT
     Dosage: 70MGM2 PER DAY
     Route: 042
     Dates: start: 20031128, end: 20031129
  8. THIOTEPA [Suspect]
     Dosage: 200MGM2 PER DAY
     Dates: start: 20031205, end: 20031206
  9. BIOFERMIN R [Concomitant]
     Dosage: 1G PER DAY
     Route: 048
     Dates: start: 20031127, end: 20031205
  10. ALLOID G [Concomitant]
     Dosage: 9ML PER DAY
     Route: 048
     Dates: start: 20031127
  11. URSO 250 [Concomitant]
     Dosage: 90MG PER DAY
     Dates: start: 20031101, end: 20031205

REACTIONS (8)
  - BRAIN OEDEMA [None]
  - MUCOUS MEMBRANE DISORDER [None]
  - ACUTE HEPATIC FAILURE [None]
  - RENAL FAILURE ACUTE [None]
  - VOMITING [None]
  - CONVULSION [None]
  - GASTROINTESTINAL HAEMORRHAGE [None]
  - CARDIAC FAILURE ACUTE [None]
